FAERS Safety Report 8811641 (Version 1)
Quarter: 2012Q4

REPORT INFORMATION
  Report Type: 
  Country: AU (occurrence: AU)
  Receive Date: 20120927
  Receipt Date: 20120927
  Transmission Date: 20130627
  Serious: Yes (Other)
  Sender: FDA-Public Use
  Company Number: AU-PFIZER INC-2012237645

PATIENT
  Age: 31 Year
  Sex: Male

DRUGS (5)
  1. FLUOROURACIL [Suspect]
     Indication: COLORECTAL CANCER
     Dosage: 400 mg/m2,  over 46 hours
  2. FLUOROURACIL [Suspect]
     Dosage: 2400 mg/m2,  over 46 hours
  3. FLUOROURACIL [Suspect]
     Dosage: 500 mg/m2, UNK
  4. LEUCOVORIN [Concomitant]
     Indication: COLORECTAL CANCER
     Dosage: 50 mg, over 46 hours
  5. OXALIPLATIN [Concomitant]
     Indication: COLORECTAL CANCER
     Dosage: 85 mg/m2, UNK

REACTIONS (1)
  - Myocardial infarction [Recovered/Resolved]
